FAERS Safety Report 18605959 (Version 1)
Quarter: 2020Q4

REPORT INFORMATION
  Report Type: Spontaneous
  Country: FR (occurrence: FR)
  Receive Date: 20201211
  Receipt Date: 20201211
  Transmission Date: 20210114
  Serious: Yes (Hospitalization)
  Sender: FDA-Public Use
  Company Number: FR-MYLANLABS-2020M1100597

PATIENT
  Age: 73 Year
  Sex: Female
  Weight: 103 kg

DRUGS (11)
  1. TAZOBACTAM [Suspect]
     Active Substance: TAZOBACTAM
     Indication: INFECTION
     Dosage: 500 MILLIGRAM, Q6H
     Route: 042
     Dates: start: 20200819, end: 20200921
  2. SERTRALINE [Suspect]
     Active Substance: SERTRALINE HYDROCHLORIDE
     Indication: DEPRESSION
     Route: 048
     Dates: start: 20200907, end: 20200921
  3. RIFAMPICINE [Suspect]
     Active Substance: RIFAMPIN
     Indication: INFECTION
     Dosage: 900 MILLIGRAM, QD
     Route: 048
     Dates: start: 20200827, end: 20200921
  4. PIPERACILLINE                      /00502401/ [Suspect]
     Active Substance: PIPERACILLIN
     Indication: INFECTION
     Dosage: 4 GRAM, Q6H
     Route: 042
     Dates: start: 20200819, end: 20200921
  5. OXYCONTIN [Suspect]
     Active Substance: OXYCODONE HYDROCHLORIDE
     Indication: PAIN
     Route: 048
     Dates: start: 20200907, end: 20200921
  6. LANSOPRAZOLE. [Suspect]
     Active Substance: LANSOPRAZOLE
     Indication: PROPHYLAXIS AGAINST GASTROINTESTINAL ULCER
     Dosage: 15 MILLIGRAM, QD
     Route: 048
     Dates: start: 20200907, end: 20201002
  7. BISOPROLOL MYLAN [Suspect]
     Active Substance: BISOPROLOL
     Indication: HYPERTENSION
     Route: 048
     Dates: start: 20200907, end: 20200921
  8. PRIMPERAN [Suspect]
     Active Substance: METOCLOPRAMIDE HYDROCHLORIDE
     Indication: NAUSEA
     Route: 048
     Dates: start: 20200907, end: 20200921
  9. DAPTOMYCINE [Concomitant]
     Active Substance: DAPTOMYCIN
     Indication: INFECTION
     Dosage: 800 MILLIGRAM, TOTAL
     Route: 042
     Dates: start: 20200819, end: 20200819
  10. OXYNORMORO [Suspect]
     Active Substance: OXYCODONE HYDROCHLORIDE
     Indication: PAIN
     Dosage: UNK
     Route: 048
     Dates: start: 20200907, end: 20200921
  11. KARDEGIC [Suspect]
     Active Substance: ASPIRIN DL-LYSINE
     Indication: THROMBOSIS PROPHYLAXIS
     Route: 048
     Dates: start: 20200907, end: 20200921

REACTIONS (5)
  - Drug reaction with eosinophilia and systemic symptoms [Not Recovered/Not Resolved]
  - Liver injury [Not Recovered/Not Resolved]
  - Eosinophilia [Not Recovered/Not Resolved]
  - Pruritus [Recovering/Resolving]
  - Rash [Recovered/Resolved]

NARRATIVE: CASE EVENT DATE: 20200916
